FAERS Safety Report 16749655 (Version 1)
Quarter: 2019Q3

REPORT INFORMATION
  Report Type: Spontaneous
  Country: US (occurrence: US)
  Receive Date: 20190828
  Receipt Date: 20190828
  Transmission Date: 20191005
  Serious: Yes (Other)
  Sender: FDA-Public Use
  Company Number: US-SA-2019SA237038

PATIENT
  Age: 58 Year
  Sex: Female
  Weight: 78 kg

DRUGS (4)
  1. PLAVIX [Suspect]
     Active Substance: CLOPIDOGREL BISULFATE
     Indication: MESENTERIC VASCULAR OCCLUSION
     Dosage: 75 MG, QD
     Route: 048
     Dates: start: 2019
  2. LOVENOX [Suspect]
     Active Substance: ENOXAPARIN SODIUM
     Indication: MESENTERIC VEIN THROMBOSIS
  3. PLAVIX [Suspect]
     Active Substance: CLOPIDOGREL BISULFATE
     Indication: MESENTERIC VEIN THROMBOSIS
  4. LOVENOX [Suspect]
     Active Substance: ENOXAPARIN SODIUM
     Indication: MESENTERIC VASCULAR OCCLUSION
     Dosage: UNK
     Route: 065

REACTIONS (4)
  - Injection site haemorrhage [Unknown]
  - Injection site bruising [Unknown]
  - Hypercoagulation [Unknown]
  - Intestinal ischaemia [Unknown]
